FAERS Safety Report 7939337-8 (Version None)
Quarter: 2011Q4

REPORT INFORMATION
  Report Type: 
  Country: None (occurrence: None)
  Receive Date: 20111125
  Receipt Date: 20111114
  Transmission Date: 20120403
  Serious: Yes (Death, Hospitalization)
  Sender: FDA-Public Use
  Company Number: US-BAYER-2011-032370

PATIENT
  Age: 37 Year
  Sex: Female

DRUGS (10)
  1. IBUPROFEN [Concomitant]
     Dosage: UNK UNK, PRN
     Dates: start: 20010101
  2. YASMIN [Suspect]
     Indication: PREMENSTRUAL SYNDROME
  3. IMITREX [Concomitant]
     Dosage: UNK UNK, PRN
     Dates: start: 20010101
  4. CYCLOBENZAPRINE [Concomitant]
     Dosage: UNK UNK, PRN
     Dates: start: 20010101
  5. YASMIN [Suspect]
     Indication: MIGRAINE
  6. YASMIN [Suspect]
     Indication: MENSTRUATION IRREGULAR
  7. CELEXA [Concomitant]
     Dosage: UNK UNK, QD
  8. TRAZODONE HCL [Concomitant]
     Dosage: UNK UNK, PRN
  9. YASMIN [Suspect]
     Indication: CONTRACEPTION
     Dosage: UNK
     Dates: start: 20040121, end: 20080426
  10. PRILOSEC [Concomitant]
     Dosage: UNK UNK, QD

REACTIONS (21)
  - CEREBRAL HAEMORRHAGE [None]
  - BRAIN OEDEMA [None]
  - SHOCK [None]
  - HYPOXIC-ISCHAEMIC ENCEPHALOPATHY [None]
  - PAIN [None]
  - SINUS TACHYCARDIA [None]
  - RESPIRATORY TRACT OEDEMA [None]
  - INJURY [None]
  - HYPERTENSION [None]
  - ACUTE RESPIRATORY FAILURE [None]
  - RENAL FAILURE [None]
  - NEURODEGENERATIVE DISORDER [None]
  - DEEP VEIN THROMBOSIS [None]
  - NAUSEA [None]
  - PULMONARY EMBOLISM [None]
  - APNOEA [None]
  - RESPIRATORY ARREST [None]
  - CARDIAC ARREST [None]
  - HYPOTENSION [None]
  - PULSE ABSENT [None]
  - MOTOR DYSFUNCTION [None]
